FAERS Safety Report 12249863 (Version 2)
Quarter: 2016Q2

REPORT INFORMATION
  Report Type: Spontaneous
  Country: JP (occurrence: JP)
  Receive Date: 20160408
  Receipt Date: 20160616
  Transmission Date: 20160815
  Serious: Yes (Death)
  Sender: FDA-Public Use
  Company Number: JP-TEVA-649045ISR

PATIENT
  Sex: Male
  Weight: 45 kg

DRUGS (3)
  1. FENTOS [Concomitant]
     Active Substance: FENTANYL
     Indication: CANCER PAIN
     Route: 062
     Dates: start: 20150620, end: 20150622
  2. VOLTAREN [Concomitant]
     Active Substance: DICLOFENAC SODIUM
     Indication: CANCER PAIN
     Dosage: 25 MILLIGRAM DAILY;
     Route: 054
     Dates: start: 20150121, end: 20150121
  3. E-FEN BUCCAL [Suspect]
     Active Substance: FENTANYL CITRATE
     Indication: BREAKTHROUGH PAIN
     Dosage: DAILY DOSE: 50 MICROGRAM-150 MICROGRAM
     Route: 002
     Dates: start: 20150620, end: 20150621

REACTIONS (1)
  - Colorectal cancer [Fatal]
